FAERS Safety Report 18248569 (Version 1)
Quarter: 2020Q3

REPORT INFORMATION
  Report Type: Spontaneous
  Country: CN (occurrence: CN)
  Receive Date: 20200909
  Receipt Date: 20200909
  Transmission Date: 20201103
  Serious: Yes (Other)
  Sender: FDA-Public Use
  Company Number: CN-ASTRAZENECA-2020SF13996

PATIENT
  Weight: 50 kg

DRUGS (4)
  1. OXALIPLATIN. [Concomitant]
     Active Substance: OXALIPLATIN
     Indication: SMALL CELL LUNG CANCER
     Route: 042
     Dates: start: 202003
  2. IMFINZI [Suspect]
     Active Substance: DURVALUMAB
     Route: 042
  3. IRINOTECAN [Concomitant]
     Active Substance: IRINOTECAN
     Indication: SMALL CELL LUNG CANCER
     Route: 042
     Dates: start: 202003
  4. IMFINZI [Suspect]
     Active Substance: DURVALUMAB
     Dosage: 500MG/CYCLE
     Route: 041
     Dates: start: 20200722

REACTIONS (1)
  - Condition aggravated [Recovering/Resolving]
